FAERS Safety Report 23479494 (Version 4)
Quarter: 2025Q3

REPORT INFORMATION
  Report Type: Spontaneous
  Country: EU (occurrence: EU)
  Receive Date: 20240205
  Receipt Date: 20250918
  Transmission Date: 20251020
  Serious: Yes (Hospitalization, Other)
  Sender: AUROBINDO
  Company Number: EU-AFSSAPS-AVMP2024000018

PATIENT
  Age: 37 Year
  Sex: Female

DRUGS (17)
  1. BROMAZEPAM [Suspect]
     Active Substance: BROMAZEPAM
     Indication: Product used for unknown indication
     Dosage: 12 MILLIGRAM, ONCE A DAY
     Route: 048
     Dates: start: 2019
  2. BROMAZEPAM [Suspect]
     Active Substance: BROMAZEPAM
     Dosage: 6 MILLIGRAM, ONCE A DAY
     Route: 048
     Dates: start: 2019
  3. ZOLPIDEM [Suspect]
     Active Substance: ZOLPIDEM TARTRATE
     Indication: Product used for unknown indication
     Dosage: 10 MILLIGRAM, ONCE A DAY AND IMV IN COCAINE ADDITION
     Route: 065
     Dates: start: 2019
  4. ZOLPIDEM [Suspect]
     Active Substance: ZOLPIDEM TARTRATE
     Dosage: 10 MILLIGRAM, ONCE A DAY AND IMV IN COCAINE ADDITION
     Route: 048
     Dates: start: 2019
  5. TRAMADOL [Suspect]
     Active Substance: TRAMADOL
     Indication: Product used for unknown indication
     Route: 065
     Dates: start: 2010
  6. LYRICA [Suspect]
     Active Substance: PREGABALIN
     Indication: Sedative therapy
     Dosage: 600 MILLIGRAM, ONCE A DAY
     Route: 065
     Dates: start: 2019
  7. LYRICA [Suspect]
     Active Substance: PREGABALIN
     Route: 048
     Dates: start: 20231128, end: 20231128
  8. LYRICA [Suspect]
     Active Substance: PREGABALIN
     Route: 048
  9. METHADONE HYDROCHLORIDE [Suspect]
     Active Substance: METHADONE HYDROCHLORIDE
     Indication: Product used for unknown indication
     Route: 065
     Dates: start: 20231128, end: 20231128
  10. BROMAZEPAM [Suspect]
     Active Substance: BROMAZEPAM
     Indication: Product used for unknown indication
     Dosage: 6 MILLIGRAM, TWO TIMES A DAY
     Route: 048
     Dates: start: 2019
  11. DIAMORPHINE [Suspect]
     Active Substance: DIAMORPHINE
     Indication: Product used for unknown indication
     Route: 045
     Dates: start: 2020
  12. DIAMORPHINE [Suspect]
     Active Substance: DIAMORPHINE
     Route: 042
     Dates: start: 2020
  13. KETAMINE [Suspect]
     Active Substance: KETAMINE
     Indication: Product used for unknown indication
     Route: 065
     Dates: start: 20231127
  14. HEROIN [Suspect]
     Active Substance: DIAMORPHINE
     Indication: Product used for unknown indication
     Route: 045
     Dates: start: 2020
  15. HEROIN [Suspect]
     Active Substance: DIAMORPHINE
     Route: 042
  16. COCAINE [Concomitant]
     Active Substance: COCAINE
     Indication: Product used for unknown indication
     Dosage: 2 GRAM, ONCE A DAY
     Route: 042
     Dates: start: 2002
  17. COCAINE [Concomitant]
     Active Substance: COCAINE
     Dosage: 2 GRAM, ONCE A DAY (REGULAR INTAKE SMOKED IN A CRACK PIPE CONSUMPTION))
     Route: 042
     Dates: start: 2019

REACTIONS (4)
  - Drug use disorder [Not Recovered/Not Resolved]
  - Substance use disorder [Not Recovered/Not Resolved]
  - Pneumonia aspiration [Recovering/Resolving]
  - Coma [Recovered/Resolved]

NARRATIVE: CASE EVENT DATE: 20020101
